FAERS Safety Report 24413335 (Version 1)
Quarter: 2024Q4

REPORT INFORMATION
  Report Type: Spontaneous
  Country: AT (occurrence: AT)
  Receive Date: 20241008
  Receipt Date: 20241008
  Transmission Date: 20250114
  Serious: Yes (Other)
  Sender: PURDUE
  Company Number: None

PATIENT
  Age: 55 Year
  Sex: Male
  Weight: 80 kg

DRUGS (4)
  1. HYDROMORPHONE HYDROCHLORIDE [Suspect]
     Active Substance: HYDROMORPHONE HYDROCHLORIDE
     Indication: Spinal pain
     Dosage: HYDAL 1.3 MG IF REQUIRED - PRESUMABLY 4 J (1.3 MILLIGRAM)
     Route: 065
  2. HYDROMORPHONE HYDROCHLORIDE [Suspect]
     Active Substance: HYDROMORPHONE HYDROCHLORIDE
     Dosage: HYDAL RETARD 4 MG (1/1) - PRESUMABLY 4 J
     Route: 065
  3. HYDROMORPHONE HYDROCHLORIDE [Suspect]
     Active Substance: HYDROMORPHONE HYDROCHLORIDE
     Dosage: HYDAL 1.3 MG IF REQUIRED - PRESUMABLY 4 J
     Route: 065
  4. HYDROMORPHONE HYDROCHLORIDE [Suspect]
     Active Substance: HYDROMORPHONE HYDROCHLORIDE
     Dosage: HYDAL RETARD 2 MG (1/1) - PRESUMABLY 4 J
     Route: 065

REACTIONS (10)
  - Immobile [Unknown]
  - Dry mouth [Unknown]
  - Anxiety disorder [Unknown]
  - Respiratory disorder [Unknown]
  - Productive cough [Unknown]
  - Bedridden [Unknown]
  - Productive cough [Unknown]
  - Dyspnoea [Unknown]
  - Skin disorder [Unknown]
  - Syncope [Unknown]

NARRATIVE: CASE EVENT DATE: 20240822
